FAERS Safety Report 6742329-8 (Version None)
Quarter: 2010Q2

REPORT INFORMATION
  Report Type: 
  Country: None (occurrence: None)
  Receive Date: 20100526
  Receipt Date: 20100512
  Transmission Date: 20101027
  Serious: Yes (Hospitalization)
  Sender: FDA-Public Use
  Company Number: BE-ELI_LILLY_AND_COMPANY-BE201004006681

PATIENT
  Sex: Male
  Weight: 63 kg

DRUGS (10)
  1. PEMETREXED [Suspect]
     Indication: NON-SMALL CELL LUNG CANCER
     Dosage: 690 MG, OTHER
     Route: 042
     Dates: start: 20100121, end: 20100416
  2. CISPLATIN [Suspect]
     Indication: NON-SMALL CELL LUNG CANCER
     Dosage: 103 MG, OTHER
     Route: 042
     Dates: start: 20100121, end: 20100416
  3. OTHER PHARMA COMPANY INV DRUG [Suspect]
     Indication: NON-SMALL CELL LUNG CANCER
     Dosage: 800 MG, OTHER
     Route: 042
     Dates: start: 20100121, end: 20100416
  4. DEXPANTHENOL [Concomitant]
  5. FOLAVIT [Concomitant]
     Indication: PROPHYLAXIS
     Dosage: 4 MG, DAILY (1/D)
  6. MYOLASTAN [Concomitant]
     Dosage: UNK, AS NEEDED
  7. CONTRAMAL [Concomitant]
     Indication: BACK PAIN
     Dates: start: 20100112
  8. PANADOL [Concomitant]
     Indication: BACK PAIN
     Dates: start: 20100120
  9. VIT B12 [Concomitant]
     Indication: PROPHYLAXIS
     Dates: start: 20100112
  10. LITICAN [Concomitant]
     Indication: NAUSEA
     Dosage: UNK, AS NEEDED
     Dates: start: 20100112

REACTIONS (7)
  - ANAEMIA [None]
  - ASTHENIA [None]
  - DECREASED APPETITE [None]
  - DIARRHOEA [None]
  - GENERAL PHYSICAL HEALTH DETERIORATION [None]
  - SYSTEMIC INFLAMMATORY RESPONSE SYNDROME [None]
  - WEIGHT DECREASED [None]
